FAERS Safety Report 6822076-4 (Version None)
Quarter: 2010Q3

REPORT INFORMATION
  Report Type: 
  Country: None (occurrence: None)
  Receive Date: 20100706
  Receipt Date: 20100706
  Transmission Date: 20110219
  Serious: No
  Sender: FDA-Public Use
  Company Number: None

PATIENT
  Age: 64 Year
  Sex: Male

DRUGS (1)
  1. FENOFIBRIC ACID [Suspect]
     Indication: HYPERLIPIDAEMIA
     Dosage: 135 MG EVERY DAY PO
     Route: 048
     Dates: start: 20100201, end: 20100501

REACTIONS (2)
  - MUSCULAR WEAKNESS [None]
  - TENDONITIS [None]
